FAERS Safety Report 20232014 (Version 1)
Quarter: 2021Q4

REPORT INFORMATION
  Report Type: Spontaneous
  Country: DE (occurrence: DE)
  Receive Date: 20211227
  Receipt Date: 20211227
  Transmission Date: 20220303
  Serious: Yes (Disabling)
  Sender: FDA-Public Use
  Company Number: DE-ORGANON-O2111DEU000724

PATIENT
  Age: 33 Year
  Sex: Female
  Weight: 71 kg

DRUGS (6)
  1. NUVARING [Suspect]
     Active Substance: ETHINYL ESTRADIOL\ETONOGESTREL
     Indication: Contraception
     Dosage: 1 RING
     Route: 067
     Dates: start: 201401, end: 201910
  2. XELJANZ [Concomitant]
     Active Substance: TOFACITINIB CITRATE
     Dosage: UNK,1-0-1
  3. PREDNISOLONE [Concomitant]
     Active Substance: PREDNISOLONE
     Dosage: 10 MILLIGRAM, QD
     Dates: start: 2010
  4. PANTOPRAZOL A [Concomitant]
     Dosage: UNK,0-0-1
  5. VIGANTOL OIL [Concomitant]
     Dosage: UNK,1-0-0
  6. EUTHYROX [Concomitant]
     Active Substance: LEVOTHYROXINE SODIUM
     Dosage: 100 MICROGRAM

REACTIONS (3)
  - Vaginal infection [Unknown]
  - Vaginal discharge [Unknown]
  - Vaginal infection [Unknown]

NARRATIVE: CASE EVENT DATE: 20140101
